FAERS Safety Report 13857380 (Version 2)
Quarter: 2017Q3

REPORT INFORMATION
  Report Type: Report from Study
  Country: ES (occurrence: ES)
  Receive Date: 20170810
  Receipt Date: 20170828
  Transmission Date: 20171127
  Serious: Yes (Other)
  Sender: FDA-Public Use
  Company Number: ES-ARIAD PHARMACEUTICALS, INC-2017ES008652

PATIENT
  Sex: Female

DRUGS (1)
  1. AP26113 [Suspect]
     Active Substance: BRIGATINIB
     Indication: PRODUCT USED FOR UNKNOWN INDICATION
     Dosage: UNK
     Route: 048
     Dates: start: 20170110, end: 20170728

REACTIONS (2)
  - Neoplasm progression [Unknown]
  - Drug ineffective [Unknown]
